FAERS Safety Report 10641229 (Version 8)
Quarter: 2016Q4

REPORT INFORMATION
  Report Type: Spontaneous
  Country: US (occurrence: US)
  Receive Date: 20141209
  Receipt Date: 20161123
  Transmission Date: 20170206
  Serious: Yes (Hospitalization, Disabling, Other)
  Sender: FDA-Public Use
  Company Number: US-MERCK-99032479

PATIENT
  Sex: Male

DRUGS (2)
  1. PROPECIA [Suspect]
     Active Substance: FINASTERIDE
     Dosage: 1 MG, QD
     Route: 048
     Dates: start: 20001025, end: 20050405
  2. PROPECIA [Suspect]
     Active Substance: FINASTERIDE
     Indication: ALOPECIA
     Dosage: 1 MG, QD
     Route: 048
     Dates: start: 19980402, end: 19990326

REACTIONS (26)
  - Anxiety [Not Recovered/Not Resolved]
  - Depression [Not Recovered/Not Resolved]
  - Self esteem decreased [Unknown]
  - Type 2 diabetes mellitus [Not Recovered/Not Resolved]
  - Neuropathy peripheral [Unknown]
  - Nerve compression [Unknown]
  - Diabetes mellitus inadequate control [Not Recovered/Not Resolved]
  - Reproductive tract disorder [Not Recovered/Not Resolved]
  - Hypertension [Not Recovered/Not Resolved]
  - Penile pain [Unknown]
  - Cognitive disorder [Not Recovered/Not Resolved]
  - Ejaculation disorder [Not Recovered/Not Resolved]
  - Hyperlipidaemia [Unknown]
  - Testicular disorder [Unknown]
  - Anhedonia [Unknown]
  - Drug ineffective [Unknown]
  - Drug ineffective [Unknown]
  - Sexual dysfunction [Not Recovered/Not Resolved]
  - Attention deficit/hyperactivity disorder [Unknown]
  - Libido decreased [Not Recovered/Not Resolved]
  - Rotator cuff syndrome [Unknown]
  - Suicidal ideation [Unknown]
  - Headache [Recovered/Resolved]
  - Erectile dysfunction [Not Recovered/Not Resolved]
  - Ejaculation failure [Not Recovered/Not Resolved]
  - Hypercholesterolaemia [Unknown]

NARRATIVE: CASE EVENT DATE: 19980625
